FAERS Safety Report 8372810-X (Version None)
Quarter: 2012Q2

REPORT INFORMATION
  Report Type: 
  Country: None (occurrence: None)
  Receive Date: 20120521
  Receipt Date: 20120509
  Transmission Date: 20120825
  Serious: Yes (Other)
  Sender: FDA-Public Use
  Company Number: US-SANOFI-AVENTIS-2012SA033518

PATIENT
  Age: 55 Year
  Sex: Female

DRUGS (7)
  1. LEVOTHYROXINE SODIUM [Concomitant]
  2. ALLEGRA [Suspect]
     Route: 048
     Dates: start: 20120505
  3. MUCINEX [Concomitant]
     Dates: start: 20120505
  4. BUDESONIDE/FORMOTEROL [Concomitant]
     Route: 055
     Dates: start: 20120507
  5. ZITHROMAX [Concomitant]
     Dates: start: 20120507
  6. ALLEGRA [Suspect]
     Route: 048
     Dates: start: 20120508, end: 20120508
  7. PREDNISONE [Concomitant]
     Dates: start: 20120508

REACTIONS (3)
  - INCORRECT DOSE ADMINISTERED [None]
  - ASTHMA [None]
  - DRUG ABUSE [None]
